FAERS Safety Report 13220862 (Version 1)
Quarter: 2017Q1

REPORT INFORMATION
  Report Type: Other
  Country: US (occurrence: US)
  Receive Date: 20170211
  Receipt Date: 20170211
  Transmission Date: 20170428
  Serious: No
  Sender: FDA-Public Use
  Company Number: US-ACORDA-ACO_129558_2016

PATIENT
  Age: 65 Year

DRUGS (1)
  1. AMPYRA [Suspect]
     Active Substance: DALFAMPRIDINE
     Indication: PRODUCT USED FOR UNKNOWN INDICATION
     Dosage: 10 MG, Q 12 HRS
     Route: 048
     Dates: start: 20161017

REACTIONS (3)
  - Inappropriate schedule of drug administration [Unknown]
  - Feeling abnormal [Unknown]
  - Mental impairment [Unknown]

NARRATIVE: CASE EVENT DATE: 20161017
